FAERS Safety Report 25198385 (Version 1)
Quarter: 2025Q2

REPORT INFORMATION
  Report Type: Spontaneous
  Country: AU (occurrence: AU)
  Receive Date: 20250415
  Receipt Date: 20250415
  Transmission Date: 20250717
  Serious: Yes (Hospitalization)
  Sender: JOHNSON AND JOHNSON
  Company Number: AU-VIIV HEALTHCARE-AU2024APC147820

PATIENT
  Age: 55 Year
  Sex: Female

DRUGS (2)
  1. RILPIVIRINE [Suspect]
     Active Substance: RILPIVIRINE
     Indication: Product used for unknown indication
     Dosage: UNK, Q2M, CABOTEGRAVIR 600MG, RILPIVIRINE 900MG, EVERY 56 DAYS
     Route: 030
  2. CABOTEGRAVIR [Suspect]
     Active Substance: CABOTEGRAVIR
     Indication: Product used for unknown indication
     Dosage: UNK, Q2M, CABOTEGRAVIR 600MG, RILPIVIRINE 900MG, EVERY 56 DAYS
     Route: 030

REACTIONS (3)
  - Mental disorder [Unknown]
  - Treatment noncompliance [Unknown]
  - Product dose omission issue [Unknown]
